FAERS Safety Report 7658496-8 (Version None)
Quarter: 2011Q3

REPORT INFORMATION
  Report Type: 
  Country: None (occurrence: None)
  Receive Date: 20110802
  Receipt Date: 20110718
  Transmission Date: 20111222
  Serious: Yes (Hospitalization)
  Sender: FDA-Public Use
  Company Number: 2011GW000398

PATIENT
  Age: 86 Year
  Sex: Female
  Weight: 58.0604 kg

DRUGS (1)
  1. MAXAIR [Suspect]
     Indication: ASTHMA
     Dosage: 200 UG; PRN; INH
     Route: 055
     Dates: start: 20080101

REACTIONS (10)
  - CONDITION AGGRAVATED [None]
  - DYSPNOEA EXERTIONAL [None]
  - PULMONARY OEDEMA [None]
  - ASTHMA [None]
  - ANXIETY [None]
  - ANGINA PECTORIS [None]
  - CHRONIC OBSTRUCTIVE PULMONARY DISEASE [None]
  - CARDIAC FAILURE CONGESTIVE [None]
  - CHEST PAIN [None]
  - BRAIN NATRIURETIC PEPTIDE INCREASED [None]
